FAERS Safety Report 4706883-X (Version None)
Quarter: 2005Q3

REPORT INFORMATION
  Report Type: 
  Country: None (occurrence: None)
  Receive Date: 20050706
  Receipt Date: 20041029
  Transmission Date: 20060218
  Serious: Yes (Hospitalization)
  Sender: FDA-Public Use
  Company Number: FR-MERCK-0411FRA00022

PATIENT
  Age: 70 Year
  Sex: Male

DRUGS (3)
  1. COZAAR [Suspect]
     Indication: HYPERTENSION
     Route: 048
     Dates: start: 19990101, end: 20041029
  2. CLOPIDOGREL BISULFATE [Concomitant]
     Indication: AORTIC BYPASS
     Route: 048
  3. ALBUTEROL SULFATE [Concomitant]
     Indication: ASTHMA
     Route: 065

REACTIONS (3)
  - ARTERITIS [None]
  - BLOOD CREATINE PHOSPHOKINASE INCREASED [None]
  - MUSCLE SPASMS [None]
